FAERS Safety Report 16868888 (Version 2)
Quarter: 2020Q1

REPORT INFORMATION
  Report Type: Spontaneous
  Country: IT (occurrence: IT)
  Receive Date: 20190930
  Receipt Date: 20200108
  Transmission Date: 20200409
  Serious: Yes (Death)
  Sender: FDA-Public Use
  Company Number: IT-PFIZER INC-2019418162

PATIENT
  Age: 58 Year
  Sex: Female
  Weight: 112 kg

DRUGS (2)
  1. PACLITAXEL. [Suspect]
     Active Substance: PACLITAXEL
     Dosage: 100 MG, UNK
  2. PACLITAXEL. [Suspect]
     Active Substance: PACLITAXEL
     Dosage: 166 MG, CYCLIC
     Route: 042

REACTIONS (1)
  - Anaphylactic shock [Fatal]

NARRATIVE: CASE EVENT DATE: 20190912
